FAERS Safety Report 13648522 (Version 5)
Quarter: 2018Q1

REPORT INFORMATION
  Report Type: Report from Study
  Country: FR (occurrence: FR)
  Receive Date: 20170613
  Receipt Date: 20180109
  Transmission Date: 20180508
  Serious: Yes (Death, Hospitalization, Other)
  Sender: FDA-Public Use
  Company Number: FR-BRISTOL-MYERS SQUIBB COMPANY-BMS-2017-051196

PATIENT
  Age: 60 Year
  Sex: Male
  Weight: 58 kg

DRUGS (6)
  1. ENTECAVIR. [Suspect]
     Active Substance: ENTECAVIR
     Indication: HEPATITIS B
     Dosage: 0.5 MG, QD
     Route: 065
     Dates: start: 20090513, end: 20141225
  2. ALPRAZOLAM. [Concomitant]
     Active Substance: ALPRAZOLAM
     Indication: ANXIETY
     Dosage: UNK, QD
     Route: 065
     Dates: end: 20141225
  3. BROMAZEPAM [Concomitant]
     Active Substance: BROMAZEPAM
     Indication: ANXIETY
     Dosage: UNK, QD
     Route: 065
     Dates: end: 20141225
  4. STABLON [Concomitant]
     Active Substance: TIANEPTINE
     Indication: DEPRESSION
     Dosage: 12.5 MG, QD
     Route: 065
     Dates: start: 2005, end: 20141225
  5. TRILEPTAL [Concomitant]
     Active Substance: OXCARBAZEPINE
     Indication: EPILEPSY
     Dosage: 300 MG, BID
     Route: 065
     Dates: start: 1973, end: 20141225
  6. CRESTOR [Concomitant]
     Active Substance: ROSUVASTATIN CALCIUM
     Indication: HYPERCHOLESTEROLAEMIA
     Dosage: 10 MG, QD
     Route: 065
     Dates: start: 2000, end: 20141225

REACTIONS (18)
  - Acute kidney injury [Fatal]
  - Jaundice cholestatic [Unknown]
  - Biliary drainage [Unknown]
  - Hepatic vein thrombosis [Unknown]
  - Virologic failure [Unknown]
  - Hepatocellular carcinoma [Fatal]
  - Hyperkalaemia [Fatal]
  - Rectal haemorrhage [Unknown]
  - Portal vein thrombosis [Unknown]
  - Bile duct obstruction [Unknown]
  - Inflammation [Fatal]
  - Melaena [Unknown]
  - Therapeutic embolisation [Unknown]
  - Haematemesis [Unknown]
  - Cancer surgery [Unknown]
  - Cholangitis acute [Unknown]
  - Peritonitis [Unknown]
  - Bile duct stent insertion [Unknown]

NARRATIVE: CASE EVENT DATE: 2010
